FAERS Safety Report 5548578-9 (Version None)
Quarter: 2007Q4

REPORT INFORMATION
  Report Type: 
  Country: None (occurrence: None)
  Receive Date: 20071211
  Receipt Date: 20070319
  Transmission Date: 20080405
  Serious: No
  Sender: FDA-Public Use
  Company Number: US-AMGEN-KDL213408

PATIENT
  Sex: Male

DRUGS (1)
  1. ENBREL [Suspect]
     Indication: POLYARTHRITIS
     Route: 058
     Dates: start: 20030801

REACTIONS (7)
  - ABASIA [None]
  - INJECTION SITE ERYTHEMA [None]
  - MUSCULOSKELETAL STIFFNESS [None]
  - ORAL DISCOMFORT [None]
  - POLYARTHRITIS [None]
  - PYREXIA [None]
  - SWELLING [None]
